FAERS Safety Report 26035982 (Version 1)
Quarter: 2025Q4

REPORT INFORMATION
  Report Type: Spontaneous
  Country: TW (occurrence: TW)
  Receive Date: 20251112
  Receipt Date: 20251112
  Transmission Date: 20260118
  Serious: Yes (Other)
  Sender: PFIZER
  Company Number: TW-PFIZER INC-PV202500130650

PATIENT
  Age: 55 Year
  Sex: Female
  Weight: 56.74 kg

DRUGS (18)
  1. TYGACIL [Suspect]
     Active Substance: TIGECYCLINE
     Indication: Pneumonia
     Dosage: 50 MG, 2X/DAY (ONCE EVERY 12 HOURS)
     Route: 041
     Dates: start: 20250824, end: 20250826
  2. ERAXIS [Suspect]
     Active Substance: ANIDULAFUNGIN
     Indication: Pneumonia
     Dosage: 100 MG, 1X/DAY
     Route: 041
     Dates: start: 20250823, end: 20250902
  3. SULFAMETHOXAZOLE\TRIMETHOPRIM [Suspect]
     Active Substance: SULFAMETHOXAZOLE\TRIMETHOPRIM
     Indication: Pneumocystis jirovecii pneumonia
     Dosage: 1600 MG (4 TAB), 2X/DAY (ONCE EVERY 12 HOURS)
     Route: 048
     Dates: start: 20250825, end: 20250829
  4. SOLU-MEDROL [Concomitant]
     Active Substance: METHYLPREDNISOLONE SODIUM SUCCINATE
     Indication: Antiphospholipid syndrome
     Dosage: 12 MG, 4X/DAY (ONCE EVERY 6 HOURS)
     Route: 042
     Dates: start: 20250826, end: 20250908
  5. CREON [Concomitant]
     Active Substance: PANCRELIPASE AMYLASE\PANCRELIPASE LIPASE\PANCRELIPASE PROTEASE
     Indication: Vitamin supplementation
     Dosage: 300MG (1 CAP), 2X/DAY (ONCE EVERY 0.5 DAY)
     Route: 048
     Dates: start: 20250811, end: 20250908
  6. DIPHENHYDRAMINE HYDROCHLORIDE [Concomitant]
     Active Substance: DIPHENHYDRAMINE HYDROCHLORIDE
     Indication: Prophylaxis
     Dosage: 30 MG
     Route: 042
     Dates: start: 20250822, end: 20250905
  7. PRIMPERAN [Concomitant]
     Active Substance: METOCLOPRAMIDE HYDROCHLORIDE
     Indication: Therapeutic procedure
     Dosage: 10 MG, 3X/DAY (ONCE EVERY 8 HOURS)
     Route: 042
     Dates: start: 20250826, end: 20250902
  8. POLYMYXIN B SULFATE [Concomitant]
     Active Substance: POLYMYXIN B SULFATE
     Indication: Pneumonia
     Dosage: 625.0 KIU, 2X/DAY (ONCE EVERY 12 HOURS)
     Route: 041
     Dates: start: 20250825, end: 20250903
  9. SENNAPUR [Concomitant]
     Indication: Constipation
     Dosage: 25 MG (2 TAB), 1X/DAY
     Route: 048
     Dates: start: 20250828, end: 20250905
  10. VEMLIDY [Concomitant]
     Active Substance: TENOFOVIR ALAFENAMIDE FUMARATE
     Indication: Viral hepatitis carrier
     Dosage: 25 MG (1 TAB)
     Route: 048
     Dates: start: 20250822, end: 20250829
  11. FENTANYL [Concomitant]
     Active Substance: FENTANYL
     Indication: Pain
     Dosage: 0.5 MG, 1X/DAY
     Route: 041
     Dates: start: 20250823, end: 20250902
  12. NOLVADEX [Concomitant]
     Active Substance: TAMOXIFEN CITRATE
     Indication: Breast cancer
     Dosage: 10 MG ( 1 TAB), 2X/DAY (ONCE EVERY 0.5 DAY)
     Route: 048
     Dates: start: 20250821, end: 20250918
  13. LANSOPRAZOLE [Concomitant]
     Active Substance: LANSOPRAZOLE
     Indication: Prophylaxis
     Dosage: 30 MG ( 1 TAB)
     Route: 048
     Dates: start: 20250822, end: 20250829
  14. METHYLCOBALAMIN [Concomitant]
     Active Substance: METHYLCOBALAMIN
     Indication: Vitamin supplementation
     Dosage: 0.5 MG (1 CAP), ONCE EVERY 0.33 DAY
     Route: 048
     Dates: start: 20250822, end: 20250829
  15. IMURAN [Concomitant]
     Active Substance: AZATHIOPRINE
     Indication: Antiphospholipid syndrome
     Dosage: 25 MG (0.5 TAB), 1X/DAY
     Route: 048
     Dates: start: 20250811, end: 20250907
  16. FOXATE [Concomitant]
     Indication: Antiphospholipid syndrome
     Dosage: 200 MG ( 1 TAB), 1X/DAY
     Route: 048
     Dates: start: 20250811, end: 20250907
  17. PLAQUENIL [Concomitant]
     Active Substance: HYDROXYCHLOROQUINE SULFATE
     Indication: Antiphospholipid syndrome
     Dosage: 200 MG (1 TAB), 2X/DAY (ONCE EVERY 0.5 DAY)
     Route: 048
     Dates: start: 20250811, end: 20250908
  18. PLAVIX [Concomitant]
     Active Substance: CLOPIDOGREL BISULFATE
     Indication: Antiphospholipid syndrome
     Dosage: 37.5 MG (0.5 TAB), CYCLIC (ONCE EVERY 2 DAYS
     Route: 048
     Dates: start: 20250825, end: 20250830

REACTIONS (2)
  - Hepatic enzyme increased [Recovering/Resolving]
  - Drug-induced liver injury [Recovering/Resolving]

NARRATIVE: CASE EVENT DATE: 20250829
